FAERS Safety Report 10442581 (Version 1)
Quarter: 2014Q3

REPORT INFORMATION
  Report Type: Report from Study
  Country: US (occurrence: US)
  Receive Date: 20140909
  Receipt Date: 20140909
  Transmission Date: 20150326
  Serious: Yes (Other)
  Sender: FDA-Public Use
  Company Number: PHEH2014US017624

PATIENT
  Age: 49 Year
  Sex: Female

DRUGS (34)
  1. IBUPROFEN. [Concomitant]
     Active Substance: IBUPROFEN
     Dosage: 300 MG, UNK
  2. GUAIFENESIN. [Concomitant]
     Active Substance: GUAIFENESIN
     Dosage: 400 MG, UNK
  3. GINKGO [Concomitant]
     Active Substance: GINKGO
     Dosage: UNK
  4. VENTOLINE [Concomitant]
     Active Substance: ALBUTEROL
     Dosage: 10 MG, UNK
  5. LUTEIN [Concomitant]
     Active Substance: LUTEIN
     Dosage: UNK
  6. GABAPENTIN. [Concomitant]
     Active Substance: GABAPENTIN
     Dosage: 100 MG, UNK
  7. DIAZEPAM. [Concomitant]
     Active Substance: DIAZEPAM
     Dosage: 10 MG, UNK
  8. IRON [Concomitant]
     Active Substance: IRON
     Dosage: 55 MG, UNK
  9. VITAMIN B12 [Concomitant]
     Active Substance: CYANOCOBALAMIN
     Dosage: UNK
  10. VITAMIN A [Concomitant]
     Active Substance: VITAMIN A
     Dosage: UNK
  11. VITAMIN B 6 [Concomitant]
     Indication: JOINT INJURY
  12. CHLORELLA [Concomitant]
     Dosage: 500 MG, UNK
  13. MAGNESIUM OXIDE W/ZINC [Concomitant]
     Indication: NERVE INJURY
     Dosage: UNK
  14. ALBUTEROL SULFATE TABLETS USP [Suspect]
     Active Substance: ALBUTEROL SULFATE
     Dosage: UNK (ONCE DAILY)
  15. ADVAIR HFA [Suspect]
     Active Substance: FLUTICASONE PROPIONATE\SALMETEROL XINAFOATE
     Dosage: UNK
  16. VITAMIIN C [Concomitant]
     Active Substance: ASCORBIC ACID
     Dosage: UNK
  17. SPIRULINA [Concomitant]
     Active Substance: SPIRULINA
     Dosage: UNK
  18. ALBUTEROL SULFATE TABLETS USP [Suspect]
     Active Substance: ALBUTEROL SULFATE
     Dosage: UNK (TWICE DAILY)
  19. BILOBAN [Concomitant]
     Dosage: 500 MG, UNK
  20. TRAMADOL [Concomitant]
     Active Substance: TRAMADOL
     Dosage: 50 MG, UNK
  21. SINGULAIR [Concomitant]
     Active Substance: MONTELUKAST SODIUM
     Dosage: 10 MG, UNK
  22. VITAMIN B 6 [Concomitant]
     Indication: SWELLING
     Dosage: 100 MG, UNK
  23. BETA CAROTENE [Concomitant]
     Dosage: UNK
  24. GLUCOSAMINE [Concomitant]
     Active Substance: GLUCOSAMINE
     Dosage: 1050 MG, UNK
  25. TOBI [Suspect]
     Active Substance: TOBRAMYCIN
     Dosage: 300 MG, UNK
     Route: 055
  26. TOBI [Suspect]
     Active Substance: TOBRAMYCIN
     Dosage: UNK (TWICE DAILY )
     Route: 055
  27. DULERA [Concomitant]
     Active Substance: FORMOTEROL FUMARATE DIHYDRATE\MOMETASONE FUROATE
     Dosage: 200 MG/5 MCG
  28. GINSENG NOS [Concomitant]
     Dosage: 500 MG, UNK
  29. TUSSIONEX PENNKINETIC [Concomitant]
     Active Substance: CHLORPHENIRAMINE\HYDROCODONE
     Dosage: UNK
  30. PROBIOTICS NOS [Concomitant]
     Active Substance: PROBIOTICS NOS
     Dosage: UNK
  31. VITAMIN E [Concomitant]
     Active Substance: .ALPHA.-TOCOPHEROL
     Dosage: UNK UKN, UNK
  32. ZYRTEC [Concomitant]
     Active Substance: CETIRIZINE HYDROCHLORIDE
     Dosage: UNK
  33. VITAMIN D3 [Concomitant]
     Active Substance: CHOLECALCIFEROL
     Dosage: 50 MG, UNK
  34. ALBUTEROL SULFATE TABLETS USP [Suspect]
     Active Substance: ALBUTEROL SULFATE
     Dosage: UNK

REACTIONS (13)
  - Road traffic accident [Unknown]
  - Spinal cord injury [Unknown]
  - Spinal fracture [Unknown]
  - Nerve injury [Unknown]
  - Hypoaesthesia [Unknown]
  - Occupational exposure to dust [Unknown]
  - Inappropriate schedule of drug administration [Unknown]
  - Malaise [Unknown]
  - Lower respiratory tract infection fungal [Unknown]
  - Eye disorder [Unknown]
  - Vomiting [Unknown]
  - Post-traumatic neck syndrome [Unknown]
  - Dyspnoea [Unknown]

NARRATIVE: CASE EVENT DATE: 201102
